FAERS Safety Report 8409737-0 (Version None)
Quarter: 2012Q2

REPORT INFORMATION
  Report Type: 
  Country: None (occurrence: None)
  Receive Date: 20120605
  Receipt Date: 20120524
  Transmission Date: 20120825
  Serious: Yes (Hospitalization)
  Sender: FDA-Public Use
  Company Number: US-US-EMD SERONO, INC.-7135669

PATIENT
  Sex: Female

DRUGS (1)
  1. REBIF [Suspect]
     Indication: PRODUCT USED FOR UNKNOWN INDICATION
     Route: 058
     Dates: start: 20120223

REACTIONS (7)
  - GAIT DISTURBANCE [None]
  - ALOPECIA [None]
  - CHEST PAIN [None]
  - INFLUENZA LIKE ILLNESS [None]
  - FATIGUE [None]
  - URINARY TRACT INFECTION [None]
  - BURNING SENSATION [None]
